FAERS Safety Report 20742902 (Version 1)
Quarter: 2022Q2

REPORT INFORMATION
  Report Type: Spontaneous
  Country: RU (occurrence: RU)
  Receive Date: 20220425
  Receipt Date: 20220425
  Transmission Date: 20220721
  Serious: Yes (Life-Threatening, Hospitalization)
  Sender: FDA-Public Use
  Company Number: RU-STRIDES ARCOLAB LIMITED-2022SP004346

PATIENT
  Age: 29 Year
  Sex: Male

DRUGS (1)
  1. DEXAMETHASONE [Suspect]
     Active Substance: DEXAMETHASONE
     Indication: B-cell type acute leukaemia
     Dosage: 10 MILLIGRAM/SQ. METER (ALL-2009 PROTOCOL)
     Route: 065
     Dates: start: 20201007

REACTIONS (12)
  - Acute respiratory distress syndrome [Recovered/Resolved]
  - Respiratory failure [Recovered/Resolved]
  - Dyspnoea at rest [Recovered/Resolved]
  - Tachypnoea [Recovered/Resolved]
  - Vomiting [Recovered/Resolved]
  - Epistaxis [Recovered/Resolved]
  - Tachycardia [Recovered/Resolved]
  - Pleural effusion [Recovered/Resolved]
  - Pericardial effusion [Recovered/Resolved]
  - SARS-CoV-2 RNA increased [Recovered/Resolved]
  - Viral load abnormal [Recovered/Resolved]
  - Blood pressure increased [Recovered/Resolved]

NARRATIVE: CASE EVENT DATE: 20201001
